FAERS Safety Report 9444395 (Version 1)
Quarter: 2013Q3

REPORT INFORMATION
  Report Type: Spontaneous
  Country: US (occurrence: None)
  Receive Date: 20130805
  Receipt Date: 20130805
  Transmission Date: 20140515
  Serious: Yes (Death, Hospitalization)
  Sender: FDA-Public Use
  Company Number: UTC-036014

PATIENT
  Age: 70 Year
  Sex: Female
  Weight: 80.9 kg

DRUGS (2)
  1. REMODULIN [Suspect]
     Indication: PULMONARY ARTERIAL HYPERTENSION
     Dosage: 0.032 UG/KG, 1 IN 1 MIN
     Route: 041
     Dates: start: 20130503, end: 201307
  2. LASIX (FUROSEMIDE) [Concomitant]

REACTIONS (4)
  - Decreased appetite [None]
  - Weight decreased [None]
  - Embolism [None]
  - Cerebrovascular accident [None]
